FAERS Safety Report 10695660 (Version 4)
Quarter: 2015Q1

REPORT INFORMATION
  Report Type: Spontaneous
  Country: FR (occurrence: FR)
  Receive Date: 20150107
  Receipt Date: 20150129
  Transmission Date: 20150721
  Serious: Yes (Hospitalization, Other)
  Sender: FDA-Public Use
  Company Number: FR-AMGEN-FRASP2014100991

PATIENT
  Age: 66 Year
  Sex: Female
  Weight: 83 kg

DRUGS (4)
  1. AMLOR [Concomitant]
     Active Substance: AMLODIPINE BESYLATE
     Dosage: 5 MG, QD
     Route: 048
     Dates: start: 20141222
  2. PARACETAMOL [Concomitant]
     Active Substance: ACETAMINOPHEN
     Dosage: 2 TABLETS, 500 MG, QID
     Route: 048
     Dates: start: 20141222
  3. MIMPARA [Suspect]
     Active Substance: CINACALCET HYDROCHLORIDE
     Indication: HYPERPARATHYROIDISM
     Dosage: 30 MG, UNK
     Route: 048
     Dates: start: 20141216, end: 20141229
  4. TAREG [Concomitant]
     Active Substance: VALSARTAN
     Dosage: 160 MG, QD
     Route: 048
     Dates: start: 20141222

REACTIONS (6)
  - Palpitations [Recovered/Resolved]
  - Hypercalcaemia [Recovered/Resolved]
  - Dyspnoea [Recovered/Resolved]
  - Headache [Unknown]
  - Abdominal pain [Recovered/Resolved]
  - Pulmonary embolism [Recovered/Resolved]

NARRATIVE: CASE EVENT DATE: 201412
